FAERS Safety Report 12798157 (Version 1)
Quarter: 2016Q3

REPORT INFORMATION
  Report Type: Spontaneous
  Country: US (occurrence: US)
  Receive Date: 20160930
  Receipt Date: 20160930
  Transmission Date: 20161109
  Serious: Yes (Hospitalization)
  Sender: FDA-Public Use
  Company Number: None

PATIENT
  Age: 75 Year
  Sex: Female
  Weight: 79.1 kg

DRUGS (2)
  1. CARBOPLATIN. [Suspect]
     Active Substance: CARBOPLATIN
     Dates: end: 20160907
  2. ETOPOSIDE (VP-16) [Suspect]
     Active Substance: ETOPOSIDE
     Dates: end: 20160909

REACTIONS (7)
  - White blood cell count decreased [None]
  - Febrile neutropenia [None]
  - Dyspnoea [None]
  - Platelet count decreased [None]
  - Cough [None]
  - Body temperature decreased [None]
  - Anaemia [None]

NARRATIVE: CASE EVENT DATE: 20160917
